FAERS Safety Report 6789405-1 (Version None)
Quarter: 2010Q2

REPORT INFORMATION
  Report Type: 
  Country: None (occurrence: None)
  Receive Date: 20100623
  Receipt Date: 20091013
  Transmission Date: 20101027
  Serious: Yes (Other)
  Sender: FDA-Public Use
  Company Number: US-PFIZER INC-2008042478

PATIENT
  Sex: Female

DRUGS (11)
  1. DEPO-PROVERA [Suspect]
     Indication: CONTRACEPTION
     Dosage: FIRST INJECTION
     Route: 030
     Dates: start: 19930720, end: 19930720
  2. DEPO-PROVERA [Suspect]
     Dosage: LAST INJECTION
     Route: 030
     Dates: start: 20040729, end: 20040729
  3. XANAX [Concomitant]
     Indication: ANXIETY
     Dosage: UNK
     Dates: start: 20020901, end: 20021001
  4. XANAX [Concomitant]
     Indication: IRRITABILITY
  5. ZYRTEC [Concomitant]
     Indication: HYPERSENSITIVITY
  6. ASTELIN [Concomitant]
     Indication: HYPERSENSITIVITY
  7. CLARITIN [Concomitant]
  8. MULTI-VITAMINS [Concomitant]
  9. TYLENOL [Concomitant]
  10. IBUPROFEN [Concomitant]
  11. HYDROCODONE [Concomitant]
     Dosage: UNK
     Dates: start: 20040601

REACTIONS (2)
  - CLAVICLE FRACTURE [None]
  - OSTEOPOROSIS [None]
